FAERS Safety Report 9156324 (Version 1)
Quarter: 2013Q1

REPORT INFORMATION
  Report Type: Report from Study
  Country: US (occurrence: US)
  Receive Date: 20130312
  Receipt Date: 20130312
  Transmission Date: 20140127
  Serious: Yes (Other)
  Sender: FDA-Public Use
  Company Number: US-009507513-1303USA003784

PATIENT
  Sex: Female

DRUGS (3)
  1. RIBAVIRIN [Suspect]
     Indication: HEPATITIS C
     Dosage: UNK
     Dates: start: 20120102
  2. VICTRELIS [Suspect]
     Indication: HEPATITIS C
     Dosage: UNK
     Dates: start: 20120205
  3. PEGINTERFERON ALFA-2A [Suspect]
     Indication: HEPATITIS C
     Dosage: UNK
     Dates: start: 20120102

REACTIONS (16)
  - Transfusion [Unknown]
  - Haemoglobin decreased [Unknown]
  - Glossodynia [Unknown]
  - Glossodynia [Unknown]
  - Hypoaesthesia oral [Unknown]
  - Blood uric acid increased [Unknown]
  - Blood bilirubin increased [Unknown]
  - Back pain [Unknown]
  - White blood cell count decreased [Unknown]
  - Oral pain [Unknown]
  - Pyrexia [Unknown]
  - Dysgeusia [Unknown]
  - Diarrhoea [Unknown]
  - Nausea [Unknown]
  - Asthenia [Unknown]
  - Platelet count decreased [Unknown]
